FAERS Safety Report 10386776 (Version 1)
Quarter: 2014Q1

REPORT INFORMATION
  Report Type: Spontaneous
  Country: US (occurrence: None)
  Receive Date: 20140306
  Receipt Date: 20140306
  Transmission Date: 20141002
  Serious: Yes (Other)
  Sender: FDA-Public Use
  Company Number: 163-21880-13062413

PATIENT
  Age: 76 Year
  Sex: Female
  Weight: 54.43 kg

DRUGS (11)
  1. REVLIMID (LENALIDOMIDE) (25 MILLIGRAM, CAPSULES) [Suspect]
     Indication: PLASMA CELL MYELOMA
     Route: 048
     Dates: start: 20110329
  2. KYTRIL (GRANISETRON) [Concomitant]
  3. DECADRON (DEXAMETHASONE) [Concomitant]
  4. LOVENOX (HEPARIN-FRACTION, SODIUM SALT) [Concomitant]
  5. ZOMETA (ZOLEDRONIC ACID) [Concomitant]
  6. OXYCODONE BR (OXYCODONE HYDROCHLORIDE) [Concomitant]
  7. OMEPRAZOLE [Concomitant]
  8. FOLIC ACID [Concomitant]
  9. VALTREX (VALACICLOVIR HYDROCHLORIDE) [Concomitant]
  10. SUDAFED (PSEUDEPHEDRINE HYDROCHLORIDE) [Concomitant]
  11. MULTIVITAMINS [Concomitant]

REACTIONS (4)
  - Haemoglobin decreased [None]
  - Platelet count decreased [None]
  - Drug ineffective [None]
  - Plasma cell myeloma [None]
